FAERS Safety Report 9776242 (Version 3)
Quarter: 2013Q4

REPORT INFORMATION
  Report Type: Spontaneous
  Country: JP (occurrence: JP)
  Receive Date: 20131220
  Receipt Date: 20131230
  Transmission Date: 20140711
  Serious: Yes (Other)
  Sender: FDA-Public Use
  Company Number: JP-PFIZER INC-2012159834

PATIENT
  Age: 6 Month
  Sex: Male

DRUGS (5)
  1. ZYVOX [Suspect]
     Indication: STAPHYLOCOCCAL INFECTION
     Dosage: UNK
  2. TEICOPLANIN [Concomitant]
     Indication: STAPHYLOCOCCAL INFECTION
     Dosage: 10MG/KG/DAY
  3. ARBEKACIN [Concomitant]
     Indication: STAPHYLOCOCCAL INFECTION
     Dosage: UNK
  4. VANCOMYCIN [Concomitant]
     Indication: STAPHYLOCOCCAL INFECTION
     Dosage: 40MG/KG/DAY
  5. VANCOMYCIN [Concomitant]
     Dosage: 2 UG/ML

REACTIONS (2)
  - Reticulocytopenia [Recovered/Resolved]
  - Anaemia [Recovered/Resolved]
